FAERS Safety Report 8161119-5 (Version None)
Quarter: 2012Q1

REPORT INFORMATION
  Report Type: 
  Country: None (occurrence: None)
  Receive Date: 20120224
  Receipt Date: 20120221
  Transmission Date: 20120608
  Serious: No
  Sender: FDA-Public Use
  Company Number: US-PFIZER INC-2012045740

PATIENT
  Sex: Female
  Weight: 83.9 kg

DRUGS (8)
  1. OMEPRAZOLE [Concomitant]
     Indication: GASTROOESOPHAGEAL REFLUX DISEASE
     Dosage: UNK
  2. VERAMYST [Concomitant]
     Indication: EAR DISORDER
     Dosage: UNK
  3. LYRICA [Suspect]
     Dosage: 150 MG, 3X/DAY
     Dates: start: 20111001
  4. SOMA [Concomitant]
     Dosage: UNK
  5. TRAMADOL [Concomitant]
     Dosage: UNK
  6. LYRICA [Suspect]
     Dosage: 150 MG, 2X/DAY
  7. LYRICA [Suspect]
     Indication: PAIN
     Dosage: 75 MG, 1X/DAY
     Dates: start: 20110601
  8. LEVOTHYROXINE [Concomitant]
     Indication: THYROID DISORDER
     Dosage: UNK

REACTIONS (5)
  - OEDEMA PERIPHERAL [None]
  - PAIN [None]
  - JOINT INJURY [None]
  - JOINT SWELLING [None]
  - BONE PAIN [None]
